FAERS Safety Report 4451772-1 (Version None)
Quarter: 2004Q3

REPORT INFORMATION
  Report Type: 
  Country: None (occurrence: None)
  Receive Date: 20040812
  Receipt Date: 20040506
  Transmission Date: 20050211
  Serious: No
  Sender: FDA-Public Use
  Company Number: USA040566738

PATIENT
  Sex: Male

DRUGS (4)
  1. CIALIS [Suspect]
     Indication: MUSCLE STRAIN
     Dosage: 20 MG AS NEEDED
  2. CARISOPRODOL [Concomitant]
  3. IBUPROFEN [Concomitant]
  4. MONOPRIL [Concomitant]

REACTIONS (2)
  - FEELING ABNORMAL [None]
  - THERAPEUTIC RESPONSE DECREASED [None]
